FAERS Safety Report 16049419 (Version 1)
Quarter: 2019Q1

REPORT INFORMATION
  Report Type: Spontaneous
  Country: US (occurrence: US)
  Receive Date: 20190307
  Receipt Date: 20190307
  Transmission Date: 20190418
  Serious: No
  Sender: FDA-Public Use
  Company Number: US-PFIZER INC-2019100599

PATIENT
  Age: 69 Year

DRUGS (2)
  1. CELEBREX [Suspect]
     Active Substance: CELECOXIB
     Indication: ARTHRITIS
     Dosage: 100 MG, UNK
  2. SKELAXIN [METAXALONE] [Concomitant]
     Indication: ARTHRITIS

REACTIONS (2)
  - Road traffic accident [Unknown]
  - Arthritis [Unknown]
